FAERS Safety Report 15122808 (Version 5)
Quarter: 2018Q3

REPORT INFORMATION
  Report Type: Report from Study
  Country: PL (occurrence: PL)
  Receive Date: 20180709
  Receipt Date: 20180920
  Transmission Date: 20181010
  Serious: Yes (Death, Hospitalization)
  Sender: FDA-Public Use
  Company Number: PL-JNJFOC-20180319115

PATIENT
  Age: 63 Year
  Sex: Female
  Weight: 81 kg

DRUGS (34)
  1. DARATUMUMAB [Suspect]
     Active Substance: DARATUMUMAB
     Indication: PLASMA CELL MYELOMA
     Dosage: PER CHEMO REGIM
     Route: 042
     Dates: start: 20180220, end: 20180320
  2. KETOPROFEN. [Concomitant]
     Active Substance: KETOPROFEN
     Route: 065
     Dates: start: 20180222, end: 20180305
  3. AVAMYS [Concomitant]
     Active Substance: FLUTICASONE FUROATE
     Dosage: ^2^
     Route: 065
     Dates: start: 20180301
  4. HEVIRAN [Concomitant]
     Active Substance: ACYCLOVIR
     Route: 065
     Dates: start: 201611
  5. DEXAMETHASONE. [Concomitant]
     Active Substance: DEXAMETHASONE
     Indication: PLASMA CELL MYELOMA
     Route: 042
     Dates: start: 20180207, end: 20180321
  6. ZOFRAN [Concomitant]
     Active Substance: ONDANSETRON HYDROCHLORIDE
     Route: 065
     Dates: start: 20180220
  7. FUROSEMIDE. [Concomitant]
     Active Substance: FUROSEMIDE
     Route: 042
     Dates: start: 20180221, end: 20180313
  8. LYRICA [Concomitant]
     Active Substance: PREGABALIN
     Dosage: 75?150MG
     Route: 065
     Dates: start: 201708
  9. TRITACE [Concomitant]
     Active Substance: RAMIPRIL
     Route: 065
     Dates: start: 20180222
  10. NASIVIN [Concomitant]
     Active Substance: OXYMETAZOLINE
     Route: 065
  11. ALFADIOL [Concomitant]
     Active Substance: ALFACALCIDOL
     Route: 065
     Dates: start: 201611
  12. KALIPOZ [Concomitant]
     Active Substance: POTASSIUM CHLORIDE
     Route: 065
  13. SALBUTAMOL [Concomitant]
     Active Substance: ALBUTEROL
     Route: 007
     Dates: start: 20180220, end: 20180301
  14. MONTELUKAST [Concomitant]
     Active Substance: MONTELUKAST SODIUM
     Route: 048
     Dates: start: 20180220
  15. AUGMENTIN [Concomitant]
     Active Substance: AMOXICILLIN\CLAVULANATE POTASSIUM
     Route: 065
     Dates: start: 20180227, end: 20180305
  16. ERDOMED [Concomitant]
     Active Substance: ERDOSTEINE
     Route: 065
     Dates: start: 20180301, end: 20180310
  17. HELICID [Concomitant]
     Active Substance: OMEPRAZOLE
     Route: 065
     Dates: start: 201705
  18. NACL [Concomitant]
     Active Substance: SODIUM CHLORIDE
     Dosage: 250?500 ML
     Route: 042
     Dates: start: 20180221
  19. MILURIT [Concomitant]
     Active Substance: ALLOPURINOL
     Route: 065
  20. CAPTOPRIL. [Concomitant]
     Active Substance: CAPTOPRIL
     Route: 065
     Dates: start: 20180222, end: 20180222
  21. CARFILZOMIB [Suspect]
     Active Substance: CARFILZOMIB
     Indication: PLASMA CELL MYELOMA
     Dosage: PER CHEMO REGIM
     Route: 042
     Dates: start: 20180220, end: 20180321
  22. SEVREDOL [Concomitant]
     Active Substance: MORPHINE
     Route: 065
     Dates: start: 20180201, end: 20180301
  23. PARACETAMOL [Concomitant]
     Active Substance: ACETAMINOPHEN
     Dates: start: 20180126
  24. CLEXANE [Concomitant]
     Active Substance: ENOXAPARIN SODIUM
     Route: 058
  25. SOLU?MEDROL [Concomitant]
     Active Substance: METHYLPREDNISOLONE SODIUM SUCCINATE
     Route: 042
  26. ZOLEDRONIC ACID [Concomitant]
     Active Substance: ZOLEDRONIC ACID
     Route: 042
     Dates: start: 20180222, end: 20180321
  27. PYRALGINUM [Concomitant]
     Dosage: 1 UNK, UNK TO 3 ML, UNK
     Dates: start: 20180220, end: 20180307
  28. DEXAMETHASONE. [Concomitant]
     Active Substance: DEXAMETHASONE
     Indication: PLASMA CELL MYELOMA
     Route: 042
  29. DULSEVIA [Concomitant]
     Dosage: 30?60MG
     Route: 065
     Dates: start: 201702
  30. MATRIFEN [Concomitant]
     Active Substance: FENTANYL
     Dosage: ^50^
     Route: 065
     Dates: start: 20180205
  31. CALPEROS [Concomitant]
     Active Substance: CALCIUM CARBONATE
     Route: 065
  32. CLEMASTIN [Concomitant]
     Active Substance: CLEMASTINE
     Route: 048
     Dates: start: 20180220
  33. ALUMINIUM ACETOTARTRATE [Concomitant]
     Active Substance: ALUMINIUM ACETOTARTRATE
     Dates: start: 20180222, end: 20180222
  34. LACIDOFIL [Concomitant]
     Active Substance: LACTOBACILLUS ACIDOPHILUS\LACTOBACILLUS RHAMNOSUS
     Dates: start: 20180122, end: 20180222

REACTIONS (3)
  - Plasma cell myeloma [Fatal]
  - Pneumonia [Recovered/Resolved]
  - Pneumonia [Recovered/Resolved]

NARRATIVE: CASE EVENT DATE: 20180306
